FAERS Safety Report 5696596-2 (Version None)
Quarter: 2008Q2

REPORT INFORMATION
  Report Type: 
  Country: None (occurrence: None)
  Receive Date: 20080404
  Receipt Date: 20080404
  Transmission Date: 20081010
  Serious: Yes (Other)
  Sender: FDA-Public Use
  Company Number: None

PATIENT
  Age: 7 Year
  Sex: Female
  Weight: 17.2367 kg

DRUGS (3)
  1. SINGULAIR [Suspect]
     Indication: ASTHMA
     Dosage: ONE PACKET DAILY PO
     Route: 048
     Dates: start: 20061120, end: 20061215
  2. SINGULAIR [Suspect]
     Indication: MULTIPLE ALLERGIES
     Dosage: ONE PACKET DAILY PO
     Route: 048
     Dates: start: 20061120, end: 20061215
  3. SINGULAIR [Suspect]

REACTIONS (8)
  - ABNORMAL BEHAVIOUR [None]
  - HALLUCINATION, VISUAL [None]
  - INITIAL INSOMNIA [None]
  - MOOD SWINGS [None]
  - NEGATIVE THOUGHTS [None]
  - SCREAMING [None]
  - THINKING ABNORMAL [None]
  - THIRST [None]
